FAERS Safety Report 9563829 (Version 1)
Quarter: 2013Q1

REPORT INFORMATION
  Report Type: Spontaneous
  Country: US (occurrence: None)
  Receive Date: 20121212
  Receipt Date: 20121212
  Transmission Date: 20140127
  Serious: No
  Sender: FDA-Public Use
  Company Number: 1211USA003318

PATIENT
  Age: 51 Year
  Sex: Female
  Weight: 81.6 kg

DRUGS (11)
  1. VICTRELIS [Suspect]
     Dosage: 4 DF, TID EVERY 7 TO 9 HOURS, ORAL, CAPSULE
  2. PEGASYS [Suspect]
     Dosage: PROCLICK
  3. ZANAFLEX (TIZANIDINE HYDROCHLORIDE) [Concomitant]
  4. AMBIEN (ZOLPIDEM TARTRATE) [Concomitant]
  5. BUSPAR (BUSPIRONE HYDROCHLORIDE) [Concomitant]
  6. VENTOLIN HFA (ALBUTEROL SULFATE) [Concomitant]
  7. ACIPHEX (RABEPRAZOLE SODIUM) [Concomitant]
  8. EPINEPHRINE [Concomitant]
  9. TRAZODONE HYDROCHLORIDE [Concomitant]
  10. ZANTAC (RANITIDINE HYDROCHLORIDE) [Concomitant]
  11. LORTAB (ACETAMINOPHEN, HYDROCODONE BITARTRATE) [Concomitant]

REACTIONS (10)
  - White blood cell count decreased [None]
  - Headache [None]
  - Neck pain [None]
  - Pain [None]
  - Influenza like illness [None]
  - Vomiting [None]
  - Red blood cell count decreased [None]
  - Decreased appetite [None]
  - Nausea [None]
  - Drug dose omission [None]
